FAERS Safety Report 12376554 (Version 2)
Quarter: 2016Q3

REPORT INFORMATION
  Report Type: Spontaneous
  Country: US (occurrence: US)
  Receive Date: 20160517
  Receipt Date: 20160901
  Transmission Date: 20161109
  Serious: No
  Sender: FDA-Public Use
  Company Number: US-RELYPSA-RLY2016000142

PATIENT
  Age: 76 Year
  Sex: Female

DRUGS (16)
  1. VELTASSA [Suspect]
     Active Substance: PATIROMER
     Indication: HYPERKALAEMIA
     Dosage: 8.4 G, QD
     Route: 048
     Dates: start: 201602
  2. NPH INSULIN [Concomitant]
     Active Substance: INSULIN BEEF
  3. LISINOPRIL. [Concomitant]
     Active Substance: LISINOPRIL
  4. LASIX [Concomitant]
     Active Substance: FUROSEMIDE
  5. FERROUS SULFATE. [Concomitant]
     Active Substance: FERROUS SULFATE
  6. CRESTOR [Concomitant]
     Active Substance: ROSUVASTATIN CALCIUM
  7. NOVOLOG [Concomitant]
     Active Substance: INSULIN ASPART
  8. GLUCOSAMINE CHONDROITIN COMPLEX    /06278301/ [Concomitant]
  9. COUMADIN [Concomitant]
     Active Substance: WARFARIN SODIUM
  10. COLACE (CLEAR) [Concomitant]
  11. PEPCID                             /00305201/ [Concomitant]
     Active Substance: ALUMINUM HYDROXIDE\MAGNESIUM CARBONATE
  12. FISH OIL [Concomitant]
     Active Substance: FISH OIL
  13. ASPIR 81 [Concomitant]
  14. CALCIUM 500+D [Concomitant]
     Active Substance: CALCIUM\VITAMIN D
  15. SODIUM BICARBONATE. [Concomitant]
     Active Substance: SODIUM BICARBONATE
  16. ALLOPURINOL. [Concomitant]
     Active Substance: ALLOPURINOL

REACTIONS (2)
  - Fatigue [Unknown]
  - Blood magnesium decreased [Unknown]

NARRATIVE: CASE EVENT DATE: 201602
